FAERS Safety Report 22029098 (Version 1)
Quarter: 2023Q1

REPORT INFORMATION
  Report Type: Spontaneous
  Country: US (occurrence: None)
  Receive Date: 20230221
  Receipt Date: 20230221
  Transmission Date: 20230417
  Serious: Yes (Other)
  Sender: FDA-Public Use
  Company Number: None

PATIENT
  Age: 33 Year
  Sex: Male
  Weight: 96.75 kg

DRUGS (5)
  1. DEXTROAMPHET SACCHARAT, AMPHET ASPARTATE, DEXTROAMPHET SULFATE AND AMP [Suspect]
     Active Substance: AMPHETAMINE ASPARTATE\AMPHETAMINE SULFATE\DEXTROAMPHETAMINE SACCHARATE\DEXTROAMPHETAMINE SULFATE
     Indication: Attention deficit hyperactivity disorder
     Dosage: OTHER QUANTITY : 1 TABLET(S);?FREQUENCY : TWICE A DAY;?
     Route: 048
  2. daily men^s mv [Concomitant]
  3. olly hello happy [Concomitant]
  4. omega3 [Concomitant]
  5. TYLENOL [Concomitant]

REACTIONS (8)
  - Product supply issue [None]
  - Drug ineffective [None]
  - Decreased appetite [None]
  - Hypoglycaemia [None]
  - Dyspnoea [None]
  - Anxiety [None]
  - Panic attack [None]
  - Product substitution issue [None]

NARRATIVE: CASE EVENT DATE: 20230220
